FAERS Safety Report 17215616 (Version 1)
Quarter: 2019Q4

REPORT INFORMATION
  Report Type: Spontaneous
  Country: DE (occurrence: DE)
  Receive Date: 20191230
  Receipt Date: 20191230
  Transmission Date: 20200122
  Serious: Yes (Death, Life-Threatening, Hospitalization, Other)
  Sender: FDA-Public Use
  Company Number: DE-BAUSCH-BL-2019-066105

PATIENT

DRUGS (15)
  1. AZATHIOPRINE. [Suspect]
     Active Substance: AZATHIOPRINE
     Indication: WHITE BLOOD CELL COUNT DECREASED
     Route: 065
     Dates: start: 20100419, end: 201907
  2. DETRUSITOL [Suspect]
     Active Substance: TOLTERODINE TARTRATE
     Indication: SYSTEMIC LUPUS ERYTHEMATOSUS
     Route: 065
  3. ACICLOVIR [Suspect]
     Active Substance: ACYCLOVIR
     Indication: SYSTEMIC LUPUS ERYTHEMATOSUS
     Route: 065
  4. FLUVASTATIN [Suspect]
     Active Substance: FLUVASTATIN SODIUM
     Indication: SYSTEMIC LUPUS ERYTHEMATOSUS
     Route: 065
  5. BENLYSTA [Suspect]
     Active Substance: BELIMUMAB
     Route: 058
     Dates: start: 201708, end: 201904
  6. AZATHIOPRINE. [Suspect]
     Active Substance: AZATHIOPRINE
     Indication: SYSTEMIC LUPUS ERYTHEMATOSUS
     Route: 065
  7. PENTACARINAT [Suspect]
     Active Substance: PENTAMIDINE ISETHIONATE
     Indication: SYSTEMIC LUPUS ERYTHEMATOSUS
     Route: 055
  8. BENLYSTA [Suspect]
     Active Substance: BELIMUMAB
     Indication: WHITE BLOOD CELL COUNT DECREASED
     Route: 058
     Dates: start: 201806, end: 201807
  9. PREDNISOLONE. [Suspect]
     Active Substance: PREDNISOLONE
     Indication: SYSTEMIC LUPUS ERYTHEMATOSUS
     Route: 065
     Dates: start: 1988
  10. BENLYSTA [Suspect]
     Active Substance: BELIMUMAB
     Indication: SYSTEMIC LUPUS ERYTHEMATOSUS
     Route: 058
     Dates: start: 201711, end: 201812
  11. VALSARTAN. [Suspect]
     Active Substance: VALSARTAN
     Indication: SYSTEMIC LUPUS ERYTHEMATOSUS
     Route: 065
  12. ELIQUIS [Suspect]
     Active Substance: APIXABAN
     Indication: SYSTEMIC LUPUS ERYTHEMATOSUS
     Route: 065
  13. LEVOTHYROXIN [Suspect]
     Active Substance: LEVOTHYROXINE
     Indication: SYSTEMIC LUPUS ERYTHEMATOSUS
     Route: 065
  14. MOLSIDOMIN [Suspect]
     Active Substance: MOLSIDOMINE
     Indication: SYSTEMIC LUPUS ERYTHEMATOSUS
     Route: 065
  15. SEVREDOL [Suspect]
     Active Substance: MORPHINE
     Indication: SYSTEMIC LUPUS ERYTHEMATOSUS
     Route: 065

REACTIONS (3)
  - Peritonitis [Fatal]
  - Lymphopenia [Unknown]
  - Leukopenia [Unknown]
